FAERS Safety Report 5860472-2 (Version None)
Quarter: 2008Q3

REPORT INFORMATION
  Report Type: 
  Country: None (occurrence: None)
  Receive Date: 20080827
  Receipt Date: 20070809
  Transmission Date: 20090109
  Serious: No
  Sender: FDA-Public Use
  Company Number: US-ABBOTT-07P-163-0377410-00

PATIENT
  Sex: Male
  Weight: 81.72 kg

DRUGS (4)
  1. NIASPAN [Suspect]
     Indication: HIGH DENSITY LIPOPROTEIN DECREASED
     Route: 048
     Dates: start: 20070808
  2. LANTUS [Concomitant]
     Indication: DIABETES MELLITUS
     Route: 050
  3. ACETYLSALICYLIC ACID SRT [Concomitant]
     Indication: PREMEDICATION
     Route: 048
     Dates: start: 20070809
  4. SIMVASTATIN [Concomitant]
     Indication: DRUG USE FOR UNKNOWN INDICATION
     Route: 048

REACTIONS (3)
  - CHEST DISCOMFORT [None]
  - FEELING HOT [None]
  - FLUSHING [None]
